FAERS Safety Report 24458370 (Version 1)
Quarter: 2024Q4

REPORT INFORMATION
  Report Type: Report from Study
  Country: CA (occurrence: CA)
  Receive Date: 20241018
  Receipt Date: 20241018
  Transmission Date: 20250115
  Serious: No
  Sender: ROCHE
  Company Number: CA-ROCHE-3521321

PATIENT
  Sex: Female
  Weight: 90.7 kg

DRUGS (25)
  1. RITUXAN [Suspect]
     Active Substance: RITUXIMAB
     Indication: Rheumatoid arthritis
     Dosage: ON 26/SEP/2023 RECEIVED THE LAST DOSE OF RITUXIMAB? FREQUENCY TEXT:DAY 1 AND 15
     Route: 042
     Dates: start: 20071130, end: 20130916
  2. RITUXAN [Suspect]
     Active Substance: RITUXIMAB
     Route: 042
     Dates: start: 20150702, end: 20150702
  3. RITUXAN [Suspect]
     Active Substance: RITUXIMAB
     Route: 042
     Dates: start: 20160713
  4. PREDNISONE [Suspect]
     Active Substance: PREDNISONE
     Indication: Product used for unknown indication
     Route: 065
  5. CINNAMON [Concomitant]
     Active Substance: CINNAMON
  6. ACETAMINOPHEN [Concomitant]
     Active Substance: ACETAMINOPHEN
     Route: 048
     Dates: start: 20071130, end: 20131003
  7. ACETAMINOPHEN [Concomitant]
     Active Substance: ACETAMINOPHEN
     Route: 048
     Dates: start: 20150702
  8. ADVIL [Concomitant]
     Active Substance: IBUPROFEN
  9. HYDROCHLOROTHIAZIDE [Concomitant]
     Active Substance: HYDROCHLOROTHIAZIDE
     Indication: Hypertension
     Dates: start: 2023
  10. CALCIUM\MAGNESIUM [Concomitant]
     Active Substance: CALCIUM\MAGNESIUM
  11. COLLAGEN [Concomitant]
     Active Substance: COLLAGEN
  12. DIPHENHYDRAMINE HYDROCHLORIDE [Concomitant]
     Active Substance: DIPHENHYDRAMINE HYDROCHLORIDE
     Route: 048
     Dates: start: 20071130
  13. GRAVOL [Concomitant]
     Active Substance: DIMENHYDRINATE
     Route: 048
     Dates: start: 20120926, end: 20131003
  14. METHYLPREDNISOLONE [Concomitant]
     Active Substance: METHYLPREDNISOLONE
     Route: 042
     Dates: start: 20071130, end: 20131003
  15. METHYLPREDNISOLONE [Concomitant]
     Active Substance: METHYLPREDNISOLONE
     Route: 042
     Dates: start: 20150702
  16. OMEGA 3 [Concomitant]
     Active Substance: CAPSAICIN
  17. ONDANSETRON [Concomitant]
     Active Substance: ONDANSETRON
     Dates: start: 2022
  18. PREGABALIN [Concomitant]
     Active Substance: PREGABALIN
     Indication: Pain
     Route: 065
  19. CETIRIZINE HYDROCHLORIDE [Concomitant]
     Active Substance: CETIRIZINE HYDROCHLORIDE
  20. SYMBICORT [Concomitant]
     Active Substance: BUDESONIDE\FORMOTEROL FUMARATE DIHYDRATE
  21. SYNTHROID [Concomitant]
     Active Substance: LEVOTHYROXINE SODIUM
  22. PANTOPRAZOLE MAGNESIUM [Concomitant]
     Active Substance: PANTOPRAZOLE MAGNESIUM
  23. HERBALS\TURMERIC [Concomitant]
     Active Substance: HERBALS\TURMERIC
  24. VITAMIN C [Concomitant]
     Active Substance: ASCORBIC ACID
  25. PULMICORT TURBUHALER [Concomitant]
     Active Substance: BUDESONIDE

REACTIONS (6)
  - Respiratory tract infection [Not Recovered/Not Resolved]
  - Mucosal infection [Not Recovered/Not Resolved]
  - Otitis externa [Unknown]
  - Cough [Recovering/Resolving]
  - Productive cough [Not Recovered/Not Resolved]
  - Cough variant asthma [Not Recovered/Not Resolved]
